FAERS Safety Report 15950071 (Version 1)
Quarter: 2019Q1

REPORT INFORMATION
  Report Type: Spontaneous
  Country: IT (occurrence: IT)
  Receive Date: 20190212
  Receipt Date: 20190212
  Transmission Date: 20190417
  Serious: Yes (Other)
  Sender: FDA-Public Use
  Company Number: IT-TEVA-2019-IT-1009133

PATIENT
  Age: 78 Year
  Sex: Female
  Weight: 83 kg

DRUGS (5)
  1. SOLDESAM [Concomitant]
     Active Substance: DEXAMETHASONE
     Indication: ANAPHYLAXIS PROPHYLAXIS
     Dates: start: 20190122, end: 20190122
  2. ONDANSETRON HYDROCHLORIDE. [Concomitant]
     Active Substance: ONDANSETRON HYDROCHLORIDE
     Indication: PROPHYLAXIS OF NAUSEA AND VOMITING
     Dates: start: 20190122, end: 20190122
  3. CHLORPHENAMINE [Concomitant]
     Active Substance: CHLORPHENIRAMINE MALEATE
     Indication: ANTIALLERGIC THERAPY
     Dates: start: 20190122, end: 20190122
  4. RANITIDINE. [Concomitant]
     Active Substance: RANITIDINE
     Indication: PROPHYLAXIS AGAINST GASTROINTESTINAL ULCER
     Dates: start: 20190122, end: 20190122
  5. PACLITAXEL. [Suspect]
     Active Substance: PACLITAXEL
     Indication: UTERINE CANCER
     Route: 041
     Dates: start: 20190122, end: 20190122

REACTIONS (3)
  - Dyspnoea [Recovered/Resolved]
  - Back pain [Recovered/Resolved]
  - Hot flush [Recovered/Resolved]

NARRATIVE: CASE EVENT DATE: 20190122
